FAERS Safety Report 5699912-0 (Version None)
Quarter: 2008Q2

REPORT INFORMATION
  Report Type: 
  Country: None (occurrence: None)
  Receive Date: 20080410
  Receipt Date: 20080407
  Transmission Date: 20081010
  Serious: Yes (Life-Threatening, Other)
  Sender: FDA-Public Use
  Company Number: NZ-MERCK-0804NZL00002

PATIENT
  Age: 76 Year
  Sex: Female

DRUGS (5)
  1. ZETIA [Suspect]
     Indication: HYPERCHOLESTEROLAEMIA
     Route: 048
     Dates: start: 20060501, end: 20061015
  2. BENDROFLUMETHIAZIDE [Concomitant]
     Route: 048
  3. TAMOXIFEN CITRATE [Concomitant]
     Indication: BREAST NEOPLASM
     Route: 048
  4. ALBUTEROL [Concomitant]
  5. FUROSEMIDE [Concomitant]
     Route: 048

REACTIONS (6)
  - COMA [None]
  - DIABETES MELLITUS [None]
  - HEPATIC FUNCTION ABNORMAL [None]
  - PANCREATIC CYST [None]
  - PANCREATITIS [None]
  - PNEUMONIA [None]
